FAERS Safety Report 12855681 (Version 1)
Quarter: 2016Q4

REPORT INFORMATION
  Report Type: Spontaneous
  Country: IT (occurrence: IT)
  Receive Date: 20161017
  Receipt Date: 20161017
  Transmission Date: 20170207
  Serious: Yes (Other)
  Sender: FDA-Public Use
  Company Number: IT-ROCHE-1842981

PATIENT
  Age: 54 Year
  Sex: Female

DRUGS (3)
  1. BEVACIZUMAB [Suspect]
     Active Substance: BEVACIZUMAB
     Indication: BREAST CANCER
     Dosage: NO
     Route: 065
     Dates: start: 20141212, end: 201508
  2. BEVACIZUMAB [Suspect]
     Active Substance: BEVACIZUMAB
     Dosage: YES
     Route: 065
     Dates: start: 201508
  3. PACLITAXEL. [Concomitant]
     Active Substance: PACLITAXEL
     Indication: BREAST CANCER
     Dosage: NO
     Route: 065
     Dates: start: 20141212, end: 20150807

REACTIONS (3)
  - Nail disorder [Unknown]
  - Peripheral sensory neuropathy [Unknown]
  - Asthenia [Unknown]
